FAERS Safety Report 5315739-3 (Version None)
Quarter: 2007Q1

REPORT INFORMATION
  Report Type: 
  Country: None (occurrence: None)
  Receive Date: 20070130
  Receipt Date: 20061109
  Transmission Date: 20070707
  Serious: Yes (Hospitalization)
  Sender: FDA-Public Use
  Company Number: 148901USA

PATIENT
  Age: 49 Year
  Sex: Female

DRUGS (11)
  1. GLATIRAMER ACETATE [Suspect]
     Indication: RELAPSING-REMITTING MULTIPLE SCLEROSIS
     Dosage: (20 MG),SUBCUTANEOUS
     Route: 058
     Dates: end: 20051101
  2. TIZANIDINE HCL [Concomitant]
  3. ESCITALOPRAM OXALATE [Concomitant]
  4. VENLAFAXINE HCL [Concomitant]
  5. MODAFINIL [Concomitant]
  6. PROPRANOLOL HYDROCHLORIDE [Concomitant]
  7. CLORAZEPATE DIPOTASSIUM [Concomitant]
  8. CETIRIZINE HYDROCHLORIDE [Concomitant]
  9. VICODIN [Concomitant]
  10. ATORVASTATIN CALCIUM [Concomitant]
  11. RIZATRIPTAN BENZOATE [Concomitant]

REACTIONS (1)
  - INFLUENZA LIKE ILLNESS [None]
